FAERS Safety Report 6137397-0 (Version None)
Quarter: 2009Q1

REPORT INFORMATION
  Report Type: 
  Country: None (occurrence: None)
  Receive Date: 20090326
  Receipt Date: 20090317
  Transmission Date: 20090719
  Serious: Yes (Hospitalization)
  Sender: FDA-Public Use
  Company Number: 2008AL004110

PATIENT
  Age: 73 Year
  Sex: Male
  Weight: 210 kg

DRUGS (6)
  1. DIGOXIN [Suspect]
     Indication: HYPERTENSION
     Dosage: 0.25MG, DAILY, PO
     Route: 048
  2. ASPIRIN [Concomitant]
  3. PROTONIX [Concomitant]
  4. TRAZODONE HCL [Concomitant]
  5. NADOLOL [Concomitant]
  6. HYTRIN [Concomitant]

REACTIONS (15)
  - ABDOMINAL PAIN [None]
  - ANAEMIA [None]
  - ATRIAL FIBRILLATION [None]
  - BLOOD POTASSIUM INCREASED [None]
  - CARDIOACTIVE DRUG LEVEL INCREASED [None]
  - COLD SWEAT [None]
  - DEHYDRATION [None]
  - DIARRHOEA HAEMORRHAGIC [None]
  - DIZZINESS [None]
  - GASTROINTESTINAL HAEMORRHAGE [None]
  - HAEMATOCHEZIA [None]
  - HYPERHIDROSIS [None]
  - OVERDOSE [None]
  - PRESYNCOPE [None]
  - RECTAL HAEMORRHAGE [None]
